FAERS Safety Report 12419678 (Version 1)
Quarter: 2016Q2

REPORT INFORMATION
  Report Type: Spontaneous
  Country: US (occurrence: US)
  Receive Date: 20160531
  Receipt Date: 20160531
  Transmission Date: 20160815
  Serious: Yes (Hospitalization, Other)
  Sender: FDA-Public Use
  Company Number: US-GLAXOSMITHKLINE-US2016GSK075924

PATIENT
  Age: 72 Year
  Sex: Female
  Weight: 53.52 kg

DRUGS (10)
  1. PROPANOLOL [Suspect]
     Active Substance: PROPRANOLOL HYDROCHLORIDE
     Dosage: UNK, QD
  2. FIORICET [Suspect]
     Active Substance: ACETAMINOPHEN\BUTALBITAL\CAFFEINE
     Indication: PRODUCT USED FOR UNKNOWN INDICATION
  3. PROPANOLOL [Concomitant]
     Active Substance: PROPRANOLOL HYDROCHLORIDE
     Indication: BLOOD PRESSURE ABNORMAL
  4. SERTRALINE [Suspect]
     Active Substance: SERTRALINE HYDROCHLORIDE
     Indication: STRESS
     Dosage: 50 MG, QD
     Dates: start: 201601, end: 201605
  5. SERTRALINE [Suspect]
     Active Substance: SERTRALINE HYDROCHLORIDE
     Indication: DEPRESSION
     Dosage: 200 MG, UNK
  6. BUTALBITAL + CAFFEINE + CODEINE + PARACETAMOL [Concomitant]
     Dosage: UNK
  7. BUPROPION SR [Suspect]
     Active Substance: BUPROPION
     Indication: STRESS
     Dosage: 100 MG, QD
     Route: 048
     Dates: start: 20160509, end: 20160510
  8. BUPROPION SR [Suspect]
     Active Substance: BUPROPION
     Indication: DEPRESSION
  9. TRAZODONE [Suspect]
     Active Substance: TRAZODONE HYDROCHLORIDE
     Indication: PRODUCT USED FOR UNKNOWN INDICATION
     Dosage: 50 MG, UNK
  10. LORAZEPAM. [Suspect]
     Active Substance: LORAZEPAM
     Indication: PRODUCT USED FOR UNKNOWN INDICATION
     Dosage: 30 MG, UNK

REACTIONS (23)
  - Suicide attempt [Recovered/Resolved]
  - Influenza like illness [Recovered/Resolved]
  - Abnormal behaviour [Recovered/Resolved]
  - Aphasia [Recovered/Resolved]
  - Muscle twitching [Recovering/Resolving]
  - Paraesthesia [Recovering/Resolving]
  - Fall [Unknown]
  - Confusional state [Recovered/Resolved]
  - Concussion [Unknown]
  - Insomnia [Recovered/Resolved]
  - Decreased appetite [Recovered/Resolved]
  - Flat affect [Recovering/Resolving]
  - Balance disorder [Not Recovered/Not Resolved]
  - Therapy cessation [Not Recovered/Not Resolved]
  - Nausea [Not Recovered/Not Resolved]
  - Muscular weakness [Unknown]
  - Hunger [Unknown]
  - Suicidal ideation [Recovered/Resolved]
  - Intentional overdose [Recovered/Resolved]
  - Feeling abnormal [Recovering/Resolving]
  - Somnolence [Recovering/Resolving]
  - Eye contusion [Unknown]
  - Feeling of body temperature change [Recovered/Resolved]

NARRATIVE: CASE EVENT DATE: 201601
